FAERS Safety Report 4359648-5 (Version None)
Quarter: 2004Q2

REPORT INFORMATION
  Report Type: 
  Country: None (occurrence: None)
  Receive Date: 20040513
  Receipt Date: 20040510
  Transmission Date: 20050107
  Serious: Yes (Hospitalization)
  Sender: FDA-Public Use
  Company Number: ES-2004-025104

PATIENT
  Age: 48 Year
  Sex: Female

DRUGS (1)
  1. ULTRAVIST 300 [Suspect]
     Dosage: 1 DOSE, INTRAVENOUS
     Route: 042
     Dates: start: 20040401, end: 20040401

REACTIONS (1)
  - SIALOADENITIS [None]
